FAERS Safety Report 15402511 (Version 1)
Quarter: 2018Q3

REPORT INFORMATION
  Report Type: Spontaneous
  Country: US (occurrence: US)
  Receive Date: 20180916
  Receipt Date: 20180916
  Transmission Date: 20181010
  Serious: Yes (Other)
  Sender: FDA-Public Use
  Company Number: None

PATIENT
  Age: 80 Year
  Sex: Male
  Weight: 108 kg

DRUGS (1)
  1. LYRICA [Suspect]
     Active Substance: PREGABALIN
     Indication: ANALGESIC THERAPY
     Dosage: ?          QUANTITY:2 CAPSULE(S);?
     Route: 048

REACTIONS (3)
  - Therapy cessation [None]
  - Product quality issue [None]
  - Gait inability [None]

NARRATIVE: CASE EVENT DATE: 20040415
